FAERS Safety Report 23061004 (Version 5)
Quarter: 2023Q4

REPORT INFORMATION
  Report Type: Report from Study
  Country: NL (occurrence: NL)
  Receive Date: 20231013
  Receipt Date: 20231225
  Transmission Date: 20240109
  Serious: Yes (Hospitalization)
  Sender: FDA-Public Use
  Company Number: NL-ABBVIE-5444968

PATIENT
  Age: 61 Year
  Sex: Male

DRUGS (22)
  1. CARBIDOPA\LEVODOPA [Suspect]
     Active Substance: CARBIDOPA\LEVODOPA
     Indication: Parkinson^s disease
     Dosage: MD:12.5 ML; CD:5.0 ML/H; ED:3.0 ML
     Route: 050
     Dates: start: 20230704, end: 20230711
  2. CARBIDOPA\LEVODOPA [Suspect]
     Active Substance: CARBIDOPA\LEVODOPA
     Dosage: DURATION TEXT: REMAINS AT 16 HOURS, LAST ADMIN DATE: 2023
     Route: 050
     Dates: start: 20230515
  3. CARBIDOPA\LEVODOPA [Suspect]
     Active Substance: CARBIDOPA\LEVODOPA
     Dosage: MD:12.5ML; ADDITIONAL TUBE FILLING: 2.5 ML, CD:4.5ML/H; ED:3.0M?DURATION TEXT: REMAINS AT 16 HOURS
     Route: 050
     Dates: start: 20230622, end: 20230628
  4. CARBIDOPA\LEVODOPA [Suspect]
     Active Substance: CARBIDOPA\LEVODOPA
     Dosage: MD:12.5 ML; CD:5.0 ML/H; ED:3.0 ML?REMAINS AT 16 HOURS
     Route: 050
     Dates: start: 20231106, end: 20231204
  5. CARBIDOPA\LEVODOPA [Suspect]
     Active Substance: CARBIDOPA\LEVODOPA
     Dosage: MD:12.5 ML; CD:4.8 ML/H; ED:3.0 ML
     Route: 050
     Dates: start: 20230629, end: 20230703
  6. CARBIDOPA\LEVODOPA [Suspect]
     Active Substance: CARBIDOPA\LEVODOPA
     Dosage: MD:12.5 ML; CD:5.2 ML/H; ED:3.0 ML, DURATION TEXT: REMAINS AT 16 HOURS
     Route: 050
     Dates: start: 20230711, end: 20231106
  7. CARBIDOPA\LEVODOPA [Suspect]
     Active Substance: CARBIDOPA\LEVODOPA
     Dosage: MD:12.5 ML; CD:5.0 ML/H; ED:3.0 ML? REMAINS AT 16 HOURS
     Route: 050
     Dates: start: 20231204
  8. SODIUM CHLORIDE [Concomitant]
     Active Substance: SODIUM CHLORIDE
     Indication: Device occlusion
     Dosage: FORM STRENGTH: 9 MILLIGRAM/MILLILITERS
     Route: 065
  9. ACETAMINOPHEN [Concomitant]
     Active Substance: ACETAMINOPHEN
     Indication: Product used for unknown indication
     Dosage: FORM STRENGTH: 1000 MG?FREQUENCY: IF NECESSARY, 4 TIMES 1 PER DAY
     Route: 048
  10. MESALAMINE [Concomitant]
     Active Substance: MESALAMINE
     Indication: Product used for unknown indication
     Dosage: FORM STRENGTH: 1200 MG
     Route: 048
  11. BENSERAZIDE HYDROCHLORIDE\LEVODOPA [Concomitant]
     Active Substance: BENSERAZIDE HYDROCHLORIDE\LEVODOPA
     Indication: On and off phenomenon
     Dosage: TIME INTERVAL: 0.33333333 DAYS: 1 UNIT?FORM STRENGTH : 125 MILLIGRAM
     Route: 048
  12. TAMSULOSIN [Concomitant]
     Active Substance: TAMSULOSIN
     Indication: Product used for unknown indication
     Dosage: CONTROLLED RELEASE (CR)?FORM STRENGTH 400 MICROGRAMS
     Route: 048
  13. SINEMET [Concomitant]
     Active Substance: CARBIDOPA\LEVODOPA
     Indication: Product used for unknown indication
     Dosage: CONTROLLED RELEASE (CR)?2 TABLET ?FORM STRENGTH: 125 MILLIGRAMS?FREQUENCY TEXT: 1 X 2 AT 10PM
     Route: 048
  14. PERINDOPRIL [Concomitant]
     Active Substance: PERINDOPRIL
     Indication: Product used for unknown indication
     Dosage: 2 MILLIGRAM
     Route: 048
  15. GLICLAZIDE [Concomitant]
     Active Substance: GLICLAZIDE
     Indication: Product used for unknown indication
     Dosage: FORM STRENGTH: 30 MILLIGRAM?CONTROLLED RELEASE (CR)
     Route: 048
  16. VILDAGLIPTIN [Concomitant]
     Active Substance: VILDAGLIPTIN
     Indication: Product used for unknown indication
     Dosage: FORM STRENGTH: 50 MILLIGRAM
     Route: 048
  17. CARBIDOPA AND LEVODOPA [Concomitant]
     Active Substance: CARBIDOPA\LEVODOPA
     Indication: Product used for unknown indication
     Dosage: FORM STRENGTH: 125  MILLIGRAM?CONTROLLED RELEASE (CR)?FREQUENCY TEXT: 1 X 2
     Route: 048
  18. FLUTICASONE PROPIONATE [Concomitant]
     Active Substance: FLUTICASONE PROPIONATE
     Indication: Product used for unknown indication
     Dosage: 2 TIMES PER DAY HALF OF AN AMPOULE INTO EACH NOSTRILS?FORM STRENGTH: 400 MICROLITRE(S)
     Route: 045
  19. SIMVASTATIN [Concomitant]
     Active Substance: SIMVASTATIN
     Indication: Product used for unknown indication
     Dosage: FORM STRENGTH: 20 MILLIGRAMS
     Route: 048
  20. ROPINIROLE [Concomitant]
     Active Substance: ROPINIROLE
     Indication: Product used for unknown indication
     Dosage: FORM STRENGTH: 4 MILLIGRAMS?CONTROLLED RELEASE (CR)
     Route: 048
  21. ROPINIROLE [Concomitant]
     Active Substance: ROPINIROLE
     Indication: Product used for unknown indication
     Dosage: FORM STRENGTH: 2 MILLIGRAM?CONTROLLED RELEASE (CR)
     Route: 048
  22. METFORMIN [Concomitant]
     Active Substance: METFORMIN HYDROCHLORIDE
     Indication: Product used for unknown indication
     Dosage: 1 UNIT?FORM STRENGTH: 500 MILLIGRAM
     Route: 048

REACTIONS (14)
  - Fall [Recovered/Resolved]
  - Urinary tract infection [Recovered/Resolved]
  - Pyrexia [Recovered/Resolved]
  - Dyskinesia [Not Recovered/Not Resolved]
  - Abnormal dreams [Not Recovered/Not Resolved]
  - Urosepsis [Not Recovered/Not Resolved]
  - Cognitive disorder [Not Recovered/Not Resolved]
  - Rehabilitation therapy [Recovered/Resolved]
  - Bladder catheterisation [Not Recovered/Not Resolved]
  - Memory impairment [Not Recovered/Not Resolved]
  - On and off phenomenon [Not Recovered/Not Resolved]
  - Respiratory tract infection [Not Recovered/Not Resolved]
  - Pyrexia [Recovering/Resolving]
  - Device colour issue [Not Recovered/Not Resolved]

NARRATIVE: CASE EVENT DATE: 20230101
